FAERS Safety Report 7658630-X (Version None)
Quarter: 2011Q3

REPORT INFORMATION
  Report Type: 
  Country: None (occurrence: None)
  Receive Date: 20110805
  Receipt Date: 20110803
  Transmission Date: 20111222
  Serious: Yes (Hospitalization, Other)
  Sender: FDA-Public Use
  Company Number: US-BRISTOL-MYERS SQUIBB COMPANY-15871494

PATIENT
  Age: 63 Year
  Sex: Female
  Weight: 80 kg

DRUGS (7)
  1. ETOPOSIDE [Suspect]
     Indication: NON-SMALL CELL LUNG CANCER STAGE III
     Dosage: RECENT INFUSION: 13JUN2011
     Route: 042
     Dates: start: 20110613
  2. TEMAZEPAM [Concomitant]
  3. IBUPROFEN [Concomitant]
     Dates: start: 20110515
  4. ZOFRAN [Concomitant]
     Dates: start: 20110615
  5. CISPLATIN [Suspect]
     Indication: NON-SMALL CELL LUNG CANCER STAGE III
     Dosage: RECENT INFUSION: 20JUN2011
     Route: 042
     Dates: start: 20110613, end: 20110613
  6. ATIVAN [Concomitant]
     Dates: start: 20110615
  7. ACETAMINOPHEN [Concomitant]
     Dates: start: 20110619

REACTIONS (4)
  - PANCREATITIS [None]
  - URINARY TRACT INFECTION [None]
  - DYSPEPSIA [None]
  - ERUCTATION [None]
